FAERS Safety Report 21408907 (Version 1)
Quarter: 2022Q4

REPORT INFORMATION
  Report Type: Spontaneous
  Country: US (occurrence: US)
  Receive Date: 20221004
  Receipt Date: 20221004
  Transmission Date: 20230113
  Serious: No
  Sender: FDA-Public Use
  Company Number: US-SA-SAC20221003000333

PATIENT

DRUGS (1)
  1. XYZAL [Suspect]
     Active Substance: LEVOCETIRIZINE DIHYDROCHLORIDE
     Indication: Hypersensitivity
     Dosage: AT NIGHT
     Route: 065

REACTIONS (5)
  - Oropharyngeal pain [Unknown]
  - Headache [Unknown]
  - Fluid retention [Unknown]
  - Rhinorrhoea [Unknown]
  - Therapy change [Unknown]

NARRATIVE: CASE EVENT DATE: 20220503
